FAERS Safety Report 9836623 (Version 1)
Quarter: 2013Q4

REPORT INFORMATION
  Report Type: Spontaneous
  Country: US (occurrence: None)
  Receive Date: 20131121
  Receipt Date: 20131121
  Transmission Date: 20140711
  Serious: Yes (Other)
  Sender: FDA-Public Use
  Company Number: 1000047444

PATIENT
  Age: 66 Year
  Sex: Female

DRUGS (3)
  1. TUDORZA PRESSAIR [Suspect]
     Indication: CHRONIC OBSTRUCTIVE PULMONARY DISEASE
     Dosage: 400 MCG, 2 IN 1 D
     Route: 055
     Dates: start: 2013
  2. TUDORZA PRESSAIR [Suspect]
     Indication: EMPHYSEMA
     Dosage: 400 MCG, 2 IN 1 D
     Route: 055
     Dates: start: 2013
  3. VIT D (ERGOCALIFEROL) [Concomitant]

REACTIONS (3)
  - Nausea [None]
  - Decreased appetite [None]
  - Dyspepsia [None]
